FAERS Safety Report 4530692-8 (Version None)
Quarter: 2004Q4

REPORT INFORMATION
  Report Type: 
  Country: None (occurrence: None)
  Receive Date: 20041217
  Receipt Date: 20041214
  Transmission Date: 20050328
  Serious: Yes (Other)
  Sender: FDA-Public Use
  Company Number: US-GLAXOSMITHKLINE-A0537271A

PATIENT
  Age: 27 Year
  Sex: Female

DRUGS (3)
  1. PAXIL [Suspect]
     Dosage: 5MG PER DAY
     Route: 048
     Dates: start: 20040501
  2. LAMICTAL [Concomitant]
  3. REMERON [Concomitant]

REACTIONS (3)
  - ANXIETY [None]
  - MANIA [None]
  - PANIC ATTACK [None]
